FAERS Safety Report 6569596-8 (Version None)
Quarter: 2010Q1

REPORT INFORMATION
  Report Type: 
  Country: None (occurrence: None)
  Receive Date: 20100204
  Receipt Date: 20100125
  Transmission Date: 20100710
  Serious: Yes (Life-Threatening, Other)
  Sender: FDA-Public Use
  Company Number: US-MYLANLABS-2009S1021491

PATIENT
  Age: 46 Year
  Sex: Female
  Weight: 55.79 kg

DRUGS (13)
  1. DUONEB [Suspect]
     Indication: ASTHMA
     Dosage: SINGLE DOSE VIALS #30
     Route: 055
     Dates: start: 20091101, end: 20091201
  2. DUONEB [Suspect]
     Dosage: SINGLE DOSE VIALS #30
     Route: 055
     Dates: start: 20091101, end: 20091201
  3. ADVAIR DISKUS 100/50 [Concomitant]
     Dosage: 250/50
  4. PREDNISONE [Concomitant]
  5. REQUIP [Concomitant]
  6. SOMA [Concomitant]
  7. VICODIN [Concomitant]
  8. VERAPAMIL [Concomitant]
  9. KLONOPIN [Concomitant]
  10. NEURONTIN [Concomitant]
  11. ROZEREM [Concomitant]
  12. IMITREX [Concomitant]
  13. DIGOXIN [Concomitant]

REACTIONS (13)
  - ANXIETY [None]
  - CHEST DISCOMFORT [None]
  - DYSPHAGIA [None]
  - DYSPHONIA [None]
  - DYSPNOEA [None]
  - MUSCLE SPASMS [None]
  - PAIN IN EXTREMITY [None]
  - PANIC ATTACK [None]
  - PRURITUS [None]
  - RASH [None]
  - RESTLESSNESS [None]
  - TACHYCARDIA [None]
  - TREMOR [None]
